FAERS Safety Report 21897980 (Version 1)
Quarter: 2023Q1

REPORT INFORMATION
  Report Type: Spontaneous
  Country: US (occurrence: None)
  Receive Date: 20230120
  Receipt Date: 20230120
  Transmission Date: 20230418
  Serious: Yes (Disabling)
  Sender: FDA-Public Use
  Company Number: None

PATIENT
  Age: 27 Year
  Sex: Female
  Weight: 67.5 kg

DRUGS (1)
  1. DULOXETINE [Suspect]
     Active Substance: DULOXETINE
     Indication: Depression
     Dosage: OTHER QUANTITY : 1 CAPSULE(S);?FREQUENCY : DAILY;?
     Route: 048

REACTIONS (8)
  - Dizziness [None]
  - Fatigue [None]
  - Depression [None]
  - Loss of personal independence in daily activities [None]
  - Impaired work ability [None]
  - Emotional disorder [None]
  - Impaired driving ability [None]
  - Product substitution issue [None]

NARRATIVE: CASE EVENT DATE: 20221001
